FAERS Safety Report 10107479 (Version 3)
Quarter: 2014Q2

REPORT INFORMATION
  Report Type: Report from Study
  Country: AU (occurrence: AU)
  Receive Date: 20140424
  Receipt Date: 20140611
  Transmission Date: 20141212
  Serious: Yes (Death, Other)
  Sender: FDA-Public Use
  Company Number: PHHY2014AU050098

PATIENT
  Age: 78 Year
  Sex: Male

DRUGS (7)
  1. ACLASTA [Suspect]
     Dosage: 5 MG, UNK
     Route: 042
     Dates: start: 20100802
  2. ACLASTA [Suspect]
     Dosage: 5 MG, UNK
     Route: 042
     Dates: start: 20110714
  3. ACLASTA [Suspect]
     Dosage: 5 MG, UNK
     Route: 042
     Dates: start: 20120620
  4. ACLASTA [Suspect]
     Dosage: 5 MG, UNK
     Route: 042
     Dates: start: 20130523
  5. LIPITOR [Concomitant]
     Dosage: 20 MG, MANE
     Route: 048
  6. OLMETEC PLUS [Concomitant]
     Dosage: 40/25 MANE MORE THA 5 YEARS
     Route: 048
  7. SOMAC [Concomitant]
     Dosage: 40 MANE MORE THAN 5 YEARS
     Route: 048

REACTIONS (3)
  - Cardiac arrest [Fatal]
  - Loss of consciousness [Unknown]
  - Circulatory collapse [Unknown]
